FAERS Safety Report 14943877 (Version 1)
Quarter: 2018Q2

REPORT INFORMATION
  Report Type: Spontaneous
  Country: ES (occurrence: ES)
  Receive Date: 20180528
  Receipt Date: 20180528
  Transmission Date: 20180711
  Serious: Yes (Hospitalization)
  Sender: FDA-Public Use
  Company Number: ES-TEVA-2018-ES-898861

PATIENT
  Age: 5 Year
  Sex: Male
  Weight: 18 kg

DRUGS (14)
  1. HYDROCORTISONE. [Suspect]
     Active Substance: HYDROCORTISONE
     Indication: PRODUCT USED FOR UNKNOWN INDICATION
     Dosage: 20 MG
     Route: 065
  2. PREDNISONE. [Suspect]
     Active Substance: PREDNISONE
     Indication: PRODUCT USED FOR UNKNOWN INDICATION
     Dosage: 60 MILLIGRAM DAILY; 60 MG, QD
     Route: 065
  3. CYTARABINE. [Suspect]
     Active Substance: CYTARABINE
     Indication: PRODUCT USED FOR UNKNOWN INDICATION
     Dosage: 5800 MG
     Route: 065
     Dates: start: 20171021, end: 20171022
  4. METHOTREXATE. [Suspect]
     Active Substance: METHOTREXATE
     Indication: PRODUCT USED FOR UNKNOWN INDICATION
     Dosage: 12 MG
     Route: 065
  5. ERWINIA [Suspect]
     Active Substance: ASPARAGINASE ERWINIA CHRYSANTHEMI
     Indication: PRODUCT USED FOR UNKNOWN INDICATION
     Dosage: 43800 IU
     Route: 065
     Dates: start: 20171026, end: 20171030
  6. ZINC ACETATE [Concomitant]
     Active Substance: ZINC ACETATE
     Indication: VITAMIN SUPPLEMENTATION
     Dosage: 10 DOSAGE FORMS DAILY; 10 MG, BID
     Route: 048
     Dates: start: 20171001
  7. SEPTRIN [Concomitant]
     Active Substance: SULFAMETHOXAZOLE\TRIMETHOPRIM
     Indication: ANTIFUNGAL PROPHYLAXIS
     Dosage: 5 ML DAILY; 5 ML, BID, THREE DAYS/ WEEK
     Route: 048
     Dates: start: 201606
  8. ETOPOSIDE. [Suspect]
     Active Substance: ETOPOSIDE
     Indication: PRODUCT USED FOR UNKNOWN INDICATION
     Dosage: 365 MG
     Route: 065
     Dates: start: 20171023, end: 20171025
  9. VINCRISTINE [Suspect]
     Active Substance: VINCRISTINE
     Indication: PRODUCT USED FOR UNKNOWN INDICATION
     Dosage: 1.5 MG/M2, QW
     Route: 065
  10. DEXAMETHASONE. [Suspect]
     Active Substance: DEXAMETHASONE
     Indication: PRODUCT USED FOR UNKNOWN INDICATION
     Dosage: 42 MG
     Route: 065
     Dates: start: 20171021, end: 20171026
  11. MASTICAL D [Concomitant]
     Indication: VITAMIN SUPPLEMENTATION
     Dosage: 500 MILLIGRAM DAILY; 500 MG, QD
     Route: 048
     Dates: start: 20171001
  12. CHOLECALCIFEROL [Concomitant]
     Active Substance: CHOLECALCIFEROL
     Indication: VITAMIN SUPPLEMENTATION
     Dosage: 12 DOSAGE FORMS DAILY; 12 DF (DROPS), QD
     Route: 048
     Dates: start: 20171001
  13. MACROGOL [Concomitant]
     Active Substance: POLYETHYLENE GLYCOLS
     Indication: CONSTIPATION PROPHYLAXIS
     Dosage: 4 GRAM DAILY; 4 G, QD
     Route: 048
     Dates: start: 20171001
  14. FLUCONAZOLE. [Concomitant]
     Active Substance: FLUCONAZOLE
     Indication: PROPHYLAXIS
     Dosage: 90 MILLIGRAM DAILY; 90 MG, QD
     Route: 048
     Dates: start: 201711

REACTIONS (7)
  - Pyrexia [Recovered/Resolved]
  - Staphylococcal bacteraemia [Recovered/Resolved]
  - Tachycardia [Recovered/Resolved]
  - Enterococcal infection [Recovered/Resolved]
  - Proteus infection [Recovered/Resolved]
  - Bacteraemia [Recovered/Resolved]
  - Streptococcal infection [Recovered/Resolved]

NARRATIVE: CASE EVENT DATE: 20180121
